FAERS Safety Report 24351246 (Version 1)
Quarter: 2024Q3

REPORT INFORMATION
  Report Type: Report from Study
  Country: AT (occurrence: AT)
  Receive Date: 20240923
  Receipt Date: 20240923
  Transmission Date: 20241017
  Serious: No
  Sender: ROCHE
  Company Number: AT-ROCHE-2077752

PATIENT
  Age: 30 Year
  Sex: Female
  Weight: 62.0 kg

DRUGS (39)
  1. HERCEPTIN [Suspect]
     Active Substance: TRASTUZUMAB
     Indication: HER2 positive breast cancer
     Route: 042
     Dates: start: 20170621, end: 20170621
  2. HERCEPTIN [Suspect]
     Active Substance: TRASTUZUMAB
     Route: 042
     Dates: start: 20170712, end: 20171115
  3. HERCEPTIN [Suspect]
     Active Substance: TRASTUZUMAB
     Route: 042
     Dates: start: 20180108, end: 20191127
  4. PERJETA [Suspect]
     Active Substance: PERTUZUMAB
     Indication: HER2 positive breast cancer
     Route: 042
     Dates: start: 20170621, end: 20170621
  5. PERJETA [Suspect]
     Active Substance: PERTUZUMAB
     Route: 042
     Dates: start: 20170712, end: 20171115
  6. PERJETA [Suspect]
     Active Substance: PERTUZUMAB
     Route: 042
     Dates: start: 20180108, end: 20191127
  7. TAXOTERE [Suspect]
     Active Substance: DOCETAXEL
     Indication: HER2 positive breast cancer
     Route: 042
     Dates: start: 20170621, end: 20171115
  8. DIPHENHYDRAMINE HYDROCHLORIDE [Concomitant]
     Active Substance: DIPHENHYDRAMINE HYDROCHLORIDE
     Dates: start: 20170621
  9. ESOMEPRAZOLE [Concomitant]
     Active Substance: ESOMEPRAZOLE
     Dates: start: 20170621
  10. DEXAMETHASONE [Concomitant]
     Active Substance: DEXAMETHASONE
     Dates: start: 20170621
  11. DEXAMETHASONE [Concomitant]
     Active Substance: DEXAMETHASONE
     Dosage: ONGOING = CHECKED
     Dates: start: 20170621
  12. DEXAMETHASONE [Concomitant]
     Active Substance: DEXAMETHASONE
     Dosage: ONGOING = CHECKED
     Dates: start: 20170621
  13. ZOFRAN [Concomitant]
     Active Substance: ONDANSETRON HYDROCHLORIDE
     Dates: start: 20170621
  14. ZOFRAN [Concomitant]
     Active Substance: ONDANSETRON HYDROCHLORIDE
     Dosage: ONGOING = CHECKED
     Dates: start: 20170621
  15. CALCIUM CARBONATE\CHOLECALCIFEROL [Concomitant]
     Active Substance: CALCIUM CARBONATE\CHOLECALCIFEROL
     Dates: start: 20171025
  16. NOVALGIN (AUSTRIA) [Concomitant]
     Dosage: ONGOING = CHECKED
     Dates: start: 20171222
  17. DEXABENE [Concomitant]
     Dosage: ONGOING = NOT CHECKED
     Dates: start: 20171220, end: 20171220
  18. PIRITRAMIDE [Concomitant]
     Active Substance: PIRITRAMIDE
     Dosage: ONGOING = NOT CHECKED
     Dates: start: 20171220, end: 20171220
  19. FENTANYL [Concomitant]
     Active Substance: FENTANYL\FENTANYL CITRATE
     Dosage: ONGOING = NOT CHECKED
     Dates: start: 20171220, end: 20171220
  20. KETANEST [Concomitant]
     Dosage: ONGOING = NOT CHECKED
     Dates: start: 20171220, end: 20171220
  21. ACETAMINOPHEN [Concomitant]
     Active Substance: ACETAMINOPHEN
     Dosage: ONGOING = NOT CHECKED
     Dates: start: 20171220, end: 20171220
  22. KETOPROFEN [Concomitant]
     Active Substance: KETOPROFEN
     Dosage: ONGOING = CHECKED
     Dates: start: 20171222
  23. PROPOFOL [Concomitant]
     Active Substance: PROPOFOL
     Dosage: ONGOING = NOT CHECKED
     Dates: start: 20171220, end: 20171220
  24. LETROZOLE [Concomitant]
     Active Substance: LETROZOLE
     Dosage: ONGOING = NOT CHECKED
     Dates: start: 20180129, end: 20200120
  25. GOSERELIN [Concomitant]
     Active Substance: GOSERELIN
     Dosage: ONGOING = CHECKED
     Dates: start: 20180129
  26. EMEND [Concomitant]
     Active Substance: APREPITANT
  27. LIPEGFILGRASTIM [Concomitant]
     Active Substance: LIPEGFILGRASTIM
  28. XGEVA [Concomitant]
     Active Substance: DENOSUMAB
  29. CALCIUM [Concomitant]
     Active Substance: CALCIUM
  30. METHYLPREDNISOLONE ACEPONATE [Concomitant]
     Active Substance: METHYLPREDNISOLONE ACEPONATE
  31. KETANEST [Concomitant]
  32. LEVETIRACETAM [Concomitant]
     Active Substance: LEVETIRACETAM
  33. NEXIUM [Concomitant]
     Active Substance: ESOMEPRAZOLE MAGNESIUM
  34. LOPERAMIDE HYDROCHLORIDE [Concomitant]
     Active Substance: LOPERAMIDE HYDROCHLORIDE
  35. APREPITANT [Concomitant]
     Active Substance: APREPITANT
  36. UNASYN [Concomitant]
     Active Substance: AMPICILLIN SODIUM\SULBACTAM SODIUM
  37. AMOXICILLIN\CLAVULANATE POTASSIUM [Concomitant]
     Active Substance: AMOXICILLIN\CLAVULANATE POTASSIUM
  38. DEXAGENTA [Concomitant]
  39. CLOBAZAM [Concomitant]
     Active Substance: CLOBAZAM

REACTIONS (1)
  - Seroma [Recovered/Resolved]

NARRATIVE: CASE EVENT DATE: 20171231
